FAERS Safety Report 5060369-4 (Version None)
Quarter: 2006Q3

REPORT INFORMATION
  Report Type: 
  Country: None (occurrence: None)
  Receive Date: 20060720
  Receipt Date: 20060713
  Transmission Date: 20061208
  Serious: Yes (Hospitalization)
  Sender: FDA-Public Use
  Company Number: 200610641BFR

PATIENT
  Age: 61 Year
  Sex: Male

DRUGS (14)
  1. CIFLOX (CIPROFLOXACIN) [Suspect]
     Indication: BRONCHITIS
     Dates: start: 20030912, end: 20030914
  2. ALDACTONE [Concomitant]
  3. CORDARONE [Concomitant]
  4. CIBLOR [Concomitant]
  5. THEOPHYLLINE [Concomitant]
  6. FLIXOTIDE [Concomitant]
  7. CORTANCYL [Concomitant]
  8. POTASSIUM [Concomitant]
  9. OROCAL [Concomitant]
  10. FORADIL [Concomitant]
  11. OMEPRAZOLE [Concomitant]
  12. LASILIX [Concomitant]
  13. PREVISCAN [Concomitant]
  14. ATORVASTATIN CALCIUM [Concomitant]

REACTIONS (3)
  - ACUTE GENERALISED EXANTHEMATOUS PUSTULOSIS [None]
  - HYPERSENSITIVITY [None]
  - SKIN TEST POSITIVE [None]
